FAERS Safety Report 8483602-5 (Version None)
Quarter: 2012Q3

REPORT INFORMATION
  Report Type: 
  Country: None (occurrence: None)
  Receive Date: 20120702
  Receipt Date: 20120628
  Transmission Date: 20120928
  Serious: Yes (Death, Hospitalization)
  Sender: FDA-Public Use
  Company Number: SE-MERCK-1206USA05003

PATIENT
  Age: 53 Year
  Sex: Male

DRUGS (2)
  1. ZOCOR [Suspect]
     Indication: HYPERCHOLESTEROLAEMIA
     Route: 048
     Dates: end: 20120401
  2. ENALAPRIL MALEATE [Concomitant]
     Route: 065

REACTIONS (2)
  - DEATH [None]
  - RHABDOMYOLYSIS [None]
